FAERS Safety Report 18581047 (Version 1)
Quarter: 2020Q4

REPORT INFORMATION
  Report Type: Spontaneous
  Country: IN (occurrence: IN)
  Receive Date: 20201204
  Receipt Date: 20201204
  Transmission Date: 20210114
  Serious: Yes (Death, Life-Threatening, Hospitalization, Other)
  Sender: FDA-Public Use
  Company Number: IN-STRIDES ARCOLAB LIMITED-2020SP014927

PATIENT
  Age: 58 Year
  Sex: Male

DRUGS (8)
  1. PREDNISOLONE. [Suspect]
     Active Substance: PREDNISOLONE
     Indication: CHRONIC OBSTRUCTIVE PULMONARY DISEASE
     Dosage: 8 MILLIGRAM PER DAY
     Route: 065
  2. HYDROCORTISONE. [Suspect]
     Active Substance: HYDROCORTISONE
     Dosage: 50 MILLIGRAM, EVERY 6 HRS
     Route: 065
  3. BUDECORT [Suspect]
     Active Substance: BUDESONIDE
     Indication: CHRONIC OBSTRUCTIVE PULMONARY DISEASE
     Dosage: 200 MILLIGRAM, EVERY 12 HRS, METERED-DOSE INHALER
  4. LEVOLIN [LEVOSALBUTAMOL] [Concomitant]
     Indication: CHRONIC OBSTRUCTIVE PULMONARY DISEASE
     Dosage: UNK, EVERY 12 HRS, METERED-DOSE INHALER
  5. HYDROCORTISONE. [Suspect]
     Active Substance: HYDROCORTISONE
     Dosage: 100 MILLIGRAM, STAT
     Route: 042
  6. HYDROCORTISONE. [Suspect]
     Active Substance: HYDROCORTISONE
     Indication: CHRONIC OBSTRUCTIVE PULMONARY DISEASE
     Dosage: UNK
     Route: 042
  7. BUDECORT [Suspect]
     Active Substance: BUDESONIDE
     Dosage: NEBULISED
  8. BETAMETHASONE. [Suspect]
     Active Substance: BETAMETHASONE
     Indication: CHRONIC OBSTRUCTIVE PULMONARY DISEASE
     Dosage: UNK
     Route: 048

REACTIONS (9)
  - Pulmonary tuberculosis [Unknown]
  - Strongyloidiasis [Fatal]
  - Diarrhoea [Unknown]
  - Dyspnoea [Unknown]
  - Intestinal obstruction [Fatal]
  - Pyrexia [Unknown]
  - Productive cough [Unknown]
  - Chronic obstructive pulmonary disease [Unknown]
  - Loss of consciousness [Fatal]
